FAERS Safety Report 6272195-9 (Version None)
Quarter: 2009Q3

REPORT INFORMATION
  Report Type: 
  Country: None (occurrence: None)
  Receive Date: 20090717
  Receipt Date: 20090715
  Transmission Date: 20100115
  Serious: Yes (Death, Other)
  Sender: FDA-Public Use
  Company Number: US-ASTRAZENECA-2008UW27377

PATIENT
  Age: 862 Month
  Sex: Male

DRUGS (1)
  1. SEROQUEL [Suspect]
     Indication: AFFECTIVE DISORDER
     Route: 048
     Dates: start: 20080201, end: 20080501

REACTIONS (7)
  - DEAFNESS [None]
  - DEATH [None]
  - DIABETES MELLITUS [None]
  - KETOACIDOSIS [None]
  - LEG AMPUTATION [None]
  - PANCREATITIS [None]
  - VISUAL IMPAIRMENT [None]
